FAERS Safety Report 8250956-4 (Version None)
Quarter: 2012Q2

REPORT INFORMATION
  Report Type: 
  Country: None (occurrence: None)
  Receive Date: 20120402
  Receipt Date: 20120323
  Transmission Date: 20120825
  Serious: Yes (Disabling, Other)
  Sender: FDA-Public Use
  Company Number: DE-ASTRAZENECA-2012SE02048

PATIENT
  Age: 49 Year
  Sex: Male
  Weight: 104 kg

DRUGS (6)
  1. ATACAND [Suspect]
     Route: 048
     Dates: start: 20120101
  2. HCT-CT [Concomitant]
     Route: 048
     Dates: start: 20100101
  3. AMLODIPINE [Concomitant]
     Indication: HYPERTENSION
     Route: 048
     Dates: start: 20110101
  4. ATACAND [Suspect]
     Indication: HYPERTENSION
     Route: 048
  5. ATACAND [Suspect]
     Route: 048
     Dates: start: 20100101, end: 20120101
  6. RAMIPRIL [Concomitant]
     Indication: HYPERTENSION
     Route: 048
     Dates: start: 20110101

REACTIONS (3)
  - ACCELERATED HYPERTENSION [None]
  - RENAL FAILURE [None]
  - DRUG INEFFECTIVE [None]
